FAERS Safety Report 9929080 (Version 3)
Quarter: 2014Q1

REPORT INFORMATION
  Report Type: Report from Study
  Country: FR (occurrence: FR)
  Receive Date: 20140227
  Receipt Date: 20140306
  Transmission Date: 20141002
  Serious: Yes (Hospitalization, Other)
  Sender: FDA-Public Use
  Company Number: PHHO2014FR001491

PATIENT
  Sex: 0

DRUGS (3)
  1. ACZ885 [Suspect]
     Indication: JUVENILE IDIOPATHIC ARTHRITIS
     Dosage: 4 MG/KG, QW4
     Route: 058
     Dates: start: 20131029, end: 20140122
  2. PREDNISOLONE [Concomitant]
     Indication: JUVENILE IDIOPATHIC ARTHRITIS
     Dosage: 5 MG, QD
     Route: 048
     Dates: start: 20131027
  3. IBUPROFEN [Concomitant]
     Indication: JUVENILE IDIOPATHIC ARTHRITIS
     Dosage: 1 G, QD (DOSE 1G LY X 1/DAY)
     Dates: start: 20140122

REACTIONS (2)
  - Lymphoma [Unknown]
  - Anaemia [Recovered/Resolved]
